FAERS Safety Report 7354093-2 (Version None)
Quarter: 2011Q1

REPORT INFORMATION
  Report Type: 
  Country: None (occurrence: None)
  Receive Date: 20110315
  Receipt Date: 20110309
  Transmission Date: 20110831
  Serious: Yes (Hospitalization)
  Sender: FDA-Public Use
  Company Number: US-MERCK-1101USA03265

PATIENT
  Age: 54 Year
  Sex: Male
  Weight: 85 kg

DRUGS (5)
  1. JANUVIA [Suspect]
     Indication: DIABETES MELLITUS
     Route: 048
     Dates: start: 20101001, end: 20101003
  2. ALTACE [Concomitant]
     Indication: HYPERTENSION
     Route: 065
  3. METFORMIN [Concomitant]
     Route: 065
  4. LIPITOR [Concomitant]
     Indication: BLOOD CHOLESTEROL INCREASED
     Route: 065
  5. PRANDIN [Concomitant]
     Route: 065

REACTIONS (4)
  - LYMPHADENITIS [None]
  - BLOOD GLUCOSE INCREASED [None]
  - ABDOMINAL PAIN [None]
  - LIPASE INCREASED [None]
